FAERS Safety Report 4412984-6 (Version None)
Quarter: 2004Q3

REPORT INFORMATION
  Report Type: 
  Country: None (occurrence: None)
  Receive Date: 20040802
  Receipt Date: 20040212
  Transmission Date: 20050211
  Serious: No
  Sender: FDA-Public Use
  Company Number: US-GLAXOSMITHKLINE-A0497989A

PATIENT
  Age: 8 Week
  Sex: Female

DRUGS (1)
  1. ZANTAC [Suspect]
     Dosage: 1.5ML TWICE PER DAY
     Route: 048
     Dates: start: 20040211

REACTIONS (2)
  - FOAMING AT MOUTH [None]
  - RETCHING [None]
